FAERS Safety Report 5934680-6 (Version None)
Quarter: 2008Q4

REPORT INFORMATION
  Report Type: 
  Country: None (occurrence: None)
  Receive Date: 20081029
  Receipt Date: 20081028
  Transmission Date: 20090506
  Serious: Yes (Other)
  Sender: FDA-Public Use
  Company Number: US-RB-003920-08

PATIENT
  Age: 38 Year
  Sex: Female

DRUGS (1)
  1. SUBOXONE [Suspect]
     Dosage: DOSAGE UNKNOWN
     Route: 060
     Dates: start: 20061201, end: 20080901

REACTIONS (2)
  - DRUG WITHDRAWAL SYNDROME [None]
  - HALLUCINATION [None]
